FAERS Safety Report 10248959 (Version 1)
Quarter: 2014Q2

REPORT INFORMATION
  Report Type: Spontaneous
  Country: JP (occurrence: JP)
  Receive Date: 20140620
  Receipt Date: 20140620
  Transmission Date: 20141212
  Serious: Yes (Other)
  Sender: FDA-Public Use
  Company Number: JP-ASTELLAS-2014JP009376AA

PATIENT
  Age: 84 Year
  Sex: Female

DRUGS (3)
  1. TACROLIMUS [Suspect]
     Indication: CHRONIC INFLAMMATORY DEMYELINATING POLYRADICULONEUROPATHY
     Dosage: UNK, UNKNOWN FREQ.
     Route: 048
  2. AZATHIOPRINE [Concomitant]
     Indication: CHRONIC INFLAMMATORY DEMYELINATING POLYRADICULONEUROPATHY
     Dosage: UNK, UNKNOWN FREQ.
     Route: 048
  3. IMMUNOGLOBULIN                     /07494701/ [Concomitant]
     Indication: CHRONIC INFLAMMATORY DEMYELINATING POLYRADICULONEUROPATHY
     Dosage: UNK, UNKNOWN FREQ.
     Route: 042

REACTIONS (3)
  - Renal disorder [Unknown]
  - Chronic inflammatory demyelinating polyradiculoneuropathy [Unknown]
  - Drug ineffective for unapproved indication [Unknown]
